FAERS Safety Report 8015326-2 (Version None)
Quarter: 2011Q4

REPORT INFORMATION
  Report Type: 
  Country: None (occurrence: None)
  Receive Date: 20111230
  Receipt Date: 20111221
  Transmission Date: 20120403
  Serious: Yes (Other)
  Sender: FDA-Public Use
  Company Number: US-PERRIGO-11US010769

PATIENT
  Sex: Male

DRUGS (3)
  1. IBUPROFEN [Suspect]
     Indication: STREPTOCOCCAL INFECTION
     Dosage: 1-2 TEASPOONS ONCE
     Route: 048
     Dates: start: 20111207, end: 20111207
  2. AMOXICILLIN [Suspect]
     Indication: STREPTOCOCCAL INFECTION
     Dosage: UNK, ONCE
     Route: 048
     Dates: start: 20111207, end: 20111207
  3. IBUPROFEN [Suspect]
     Indication: PYREXIA

REACTIONS (7)
  - HYPERSENSITIVITY [None]
  - DYSPNOEA [None]
  - SWOLLEN TONGUE [None]
  - SWELLING FACE [None]
  - EYE SWELLING [None]
  - URTICARIA [None]
  - OEDEMA MOUTH [None]
